FAERS Safety Report 19520234 (Version 2)
Quarter: 2021Q3

REPORT INFORMATION
  Report Type: Report from Study
  Country: MX (occurrence: MX)
  Receive Date: 20210712
  Receipt Date: 20210908
  Transmission Date: 20211014
  Serious: Yes (Hospitalization)
  Sender: FDA-Public Use
  Company Number: MX-VIFOR (INTERNATIONAL) INC.-VIT-2021-05709

PATIENT
  Age: 61 Year
  Sex: Male
  Weight: 82.9 kg

DRUGS (4)
  1. MIRCERA [Suspect]
     Active Substance: METHOXY POLYETHYLENE GLYCOL-EPOETIN BETA
     Indication: NEPHROGENIC ANAEMIA
     Dosage: ERYTHROPOIETIN BETA PREFILLED SYRINGE 100 MCG?0.3ML
     Route: 058
     Dates: start: 20190912, end: 20210115
  2. MIRCERA [Suspect]
     Active Substance: METHOXY POLYETHYLENE GLYCOL-EPOETIN BETA
     Route: 058
     Dates: start: 202101
  3. TACROLIMUS. [Concomitant]
     Active Substance: TACROLIMUS
     Dosage: IMMUNOSUPPRESSANT DOSE AND FREQUENCY WERE NOT REPORTED
     Route: 065
  4. MYCOPHENOLIC ACID. [Concomitant]
     Active Substance: MYCOPHENOLIC ACID
     Route: 065

REACTIONS (2)
  - Renal impairment [Recovered/Resolved]
  - Haemoglobin decreased [Recovered/Resolved]
